FAERS Safety Report 17416568 (Version 1)
Quarter: 2020Q1

REPORT INFORMATION
  Report Type: Spontaneous
  Country: US (occurrence: US)
  Receive Date: 20200213
  Receipt Date: 20200213
  Transmission Date: 20200409
  Serious: No
  Sender: FDA-Public Use
  Company Number: US-GE HEALTHCARE LIFE SCIENCES-2019CSU005442

PATIENT
  Age: 43 Year
  Sex: Female

DRUGS (4)
  1. VISIPAQUE [Suspect]
     Active Substance: IODIXANOL
     Indication: VESICAL FISTULA
  2. VISIPAQUE [Suspect]
     Active Substance: IODIXANOL
     Indication: DIAGNOSTIC PROCEDURE
     Dosage: 125 ML, SINGLE
     Route: 042
     Dates: start: 20191022, end: 20191022
  3. PREDNISONE. [Concomitant]
     Active Substance: PREDNISONE
     Dosage: 150 MG (3 DOSES OF 50 MG), UNK
     Dates: start: 20191022
  4. BENADRYL [Concomitant]
     Active Substance: DIPHENHYDRAMINE HYDROCHLORIDE
     Dosage: 50 MG, SINGLE
     Route: 048
     Dates: start: 20191022

REACTIONS (3)
  - Pruritus [Recovering/Resolving]
  - Rash [Recovering/Resolving]
  - Urticaria [Recovering/Resolving]

NARRATIVE: CASE EVENT DATE: 20191022
